FAERS Safety Report 18860804 (Version 1)
Quarter: 2021Q1

REPORT INFORMATION
  Report Type: Spontaneous
  Country: US (occurrence: US)
  Receive Date: 20210208
  Receipt Date: 20210208
  Transmission Date: 20210420
  Serious: Yes (Hospitalization, Other)
  Sender: FDA-Public Use
  Company Number: US-SERVIER-S21001031

PATIENT

DRUGS (6)
  1. ONCASPAR [Suspect]
     Active Substance: PEGASPARGASE
     Indication: ACUTE LYMPHOCYTIC LEUKAEMIA
     Dosage: 1400 IU, ONE DOSE
     Route: 042
     Dates: start: 20210202, end: 20210202
  2. TN UNSPECIFIED [ONDANSETRON HYDROCHLORIDE] [Concomitant]
     Active Substance: ONDANSETRON HYDROCHLORIDE
     Indication: PREMEDICATION
     Dosage: 2 MG, ONE DOSE
     Route: 048
     Dates: start: 20210202, end: 20210202
  3. TN UNSPECIFIED [DIPHENHYDRAMINE HYDROCHLORIDE] [Concomitant]
     Active Substance: DIPHENHYDRAMINE HYDROCHLORIDE
     Indication: PREMEDICATION
     Dosage: 13.5 MG, ONE DOSE
     Route: 048
     Dates: start: 20210202, end: 20210202
  4. TN UNSPECIFIED [PARACETAMOL] [Concomitant]
     Active Substance: ACETAMINOPHEN
     Indication: PREMEDICATION
     Dosage: 160 MG, ONE DOSE
     Route: 048
     Dates: start: 20210202, end: 20210202
  5. TN UNSPECIFIED [FAMOTIDINE] [Concomitant]
     Active Substance: FAMOTIDINE
     Indication: PREMEDICATION
     Dosage: 7 MG, ONE DOSE
     Route: 048
     Dates: start: 20210202, end: 20210202
  6. TN UNSPECIFIED [HYDROCORTISONE SODIUM SUCCINATE] [Concomitant]
     Active Substance: HYDROCORTISONE SODIUM SUCCINATE
     Indication: PREMEDICATION
     Dosage: 13.5 MG, ONE DOSE
     Route: 042
     Dates: start: 20210202, end: 20210202

REACTIONS (1)
  - Hypersensitivity [Recovered/Resolved]

NARRATIVE: CASE EVENT DATE: 20210202
